FAERS Safety Report 21831020 (Version 1)
Quarter: 2023Q1

REPORT INFORMATION
  Report Type: Spontaneous
  Country: IN (occurrence: IN)
  Receive Date: 20230106
  Receipt Date: 20230106
  Transmission Date: 20230418
  Serious: Yes (Other)
  Sender: FDA-Public Use
  Company Number: IN-PFIZER INC-2019396686

PATIENT
  Age: 60 Year
  Sex: Female

DRUGS (23)
  1. PALBOCICLIB [Suspect]
     Active Substance: PALBOCICLIB
     Indication: Breast cancer stage IV
     Dosage: 125 MG, 1X/DAY
     Route: 048
     Dates: start: 20180618
  2. PALBOCICLIB [Suspect]
     Active Substance: PALBOCICLIB
     Dosage: 100 MG, DAILY FOR 21 DAYS THEN OFF FOR 7 DAYS)
     Route: 048
  3. PALBOCICLIB [Suspect]
     Active Substance: PALBOCICLIB
     Dosage: 100 MG, 1X/DAY
     Route: 048
     Dates: start: 20190629
  4. PALBOCICLIB [Suspect]
     Active Substance: PALBOCICLIB
     Dosage: 100 MG, 1X/DAY
     Route: 048
     Dates: start: 20210428
  5. LETROZOLE [Concomitant]
     Active Substance: LETROZOLE
     Dosage: 2.5 MG, 1X/DAY (3 MONTHS)
  6. EZORB FORTE [Concomitant]
     Dosage: 1 DF, 1X/DAY (3 MONTHS)
  7. OXICHAMP [Concomitant]
     Dosage: 4 G, 1X/DAY (3 MONTHS)
  8. VITBULL-EC [Concomitant]
     Dosage: UNK
  9. ASPIRIN [Concomitant]
     Active Substance: ASPIRIN
     Dosage: 75 MG, 1X/DAY (3 MONTHS)
  10. ACETAMINOPHEN [Concomitant]
     Active Substance: ACETAMINOPHEN
     Dosage: 650 MG, AS NEEDED (3 MONTHS)
  11. ATORVASTATIN [Concomitant]
     Active Substance: ATORVASTATIN
     Dosage: 5 MG, 1X/DAY (BEDTIME X 3 MONTHS)
  12. APTIVATE [Concomitant]
     Dosage: UNK, 2X/DAY (2 TSF, TWICE DAILY FOR 3 MONTHS)
  13. FILGRASTIM [Concomitant]
     Active Substance: FILGRASTIM
     Dosage: 300 UG
     Route: 058
     Dates: start: 20210216
  14. FILGRASTIM [Concomitant]
     Active Substance: FILGRASTIM
     Dosage: 300 UG
     Route: 058
     Dates: start: 20210317
  15. ZOLEDRONIC ACID [Concomitant]
     Active Substance: ZOLEDRONIC ACID
     Dosage: 4 MG
     Route: 042
  16. ZOLEDRONIC ACID [Concomitant]
     Active Substance: ZOLEDRONIC ACID
     Dosage: UNK, 2X/DAY
  17. NEUROBION FORTE [CYANOCOBALAMIN;PYRIDOXINE HYDROCHLORIDE;THIAMINE DISU [Concomitant]
     Dosage: UNK, 1X/DAY
  18. ARORAB HD [Concomitant]
     Dosage: UNK, 1X/DAY
  19. DULOXETINE [Concomitant]
     Active Substance: DULOXETINE
     Dosage: 1X/DAY (BED TIME)
  20. DULOXETINE [Concomitant]
     Active Substance: DULOXETINE
     Dosage: 2X/DAY
  21. GABAPENTIN [Concomitant]
     Active Substance: GABAPENTIN
     Dosage: 1X/DAY (BED TIME)
  22. PANTOVIT [Concomitant]
     Dosage: 200 MG, 1X/DAY
  23. NUCOXIA P [Concomitant]
     Dosage: UNK, 1X/DAY

REACTIONS (7)
  - Carcinoembryonic antigen increased [Unknown]
  - Pain in extremity [Unknown]
  - Mass [Unknown]
  - Axillary pain [Unknown]
  - Neoplasm progression [Unknown]
  - Nausea [Unknown]
  - Dengue fever [Unknown]

NARRATIVE: CASE EVENT DATE: 20221207
